FAERS Safety Report 4471110-8 (Version None)
Quarter: 2004Q4

REPORT INFORMATION
  Report Type: 
  Country: None (occurrence: None)
  Receive Date: 20041006
  Receipt Date: 20040921
  Transmission Date: 20050328
  Serious: Yes (Hospitalization, Other)
  Sender: FDA-Public Use
  Company Number: MPS1-10281

PATIENT
  Age: 12 Month
  Sex: Male
  Weight: 13.7 kg

DRUGS (2)
  1. ALDURAZYME [Suspect]
     Indication: MUCOPOLYSACCHARIDOSIS I
     Dosage: 8.4 MG QWK IV
     Route: 042
     Dates: start: 20040301, end: 20040601
  2. ALDURAZYME [Suspect]
     Indication: MUCOPOLYSACCHARIDOSIS I
     Dosage: 8.4 MG QWK IV
     Route: 042
     Dates: start: 20040901

REACTIONS (2)
  - BONE MARROW DEPRESSION [None]
  - BONE MARROW TRANSPLANT REJECTION [None]
